FAERS Safety Report 11895852 (Version 1)
Quarter: 2016Q1

REPORT INFORMATION
  Report Type: Spontaneous
  Country: CA (occurrence: CA)
  Receive Date: 20160107
  Receipt Date: 20160107
  Transmission Date: 20160526
  Serious: Yes (Hospitalization)
  Sender: FDA-Public Use
  Company Number: CA-TEVA-622398ACC

PATIENT
  Age: 44 Year
  Sex: Male

DRUGS (14)
  1. REMERON [Interacting]
     Active Substance: MIRTAZAPINE
     Indication: INSOMNIA
     Dosage: 30 MILLIGRAM DAILY;
     Route: 048
  2. ASCORBIC ACID (VITAMIN C) [Concomitant]
     Active Substance: ASCORBIC ACID
  3. QUETIAPINE [Suspect]
     Active Substance: QUETIAPINE
     Indication: INSOMNIA
     Dosage: 12.5 MILLIGRAM DAILY;
     Route: 048
  4. ENALAPRIL [Concomitant]
     Active Substance: ENALAPRIL
  5. FRAGMIN [Concomitant]
     Active Substance: DALTEPARIN SODIUM
  6. IBUPROFEN. [Concomitant]
     Active Substance: IBUPROFEN
  7. CRANBERRY. [Concomitant]
     Active Substance: CRANBERRY
  8. LIPITOR [Concomitant]
     Active Substance: ATORVASTATIN CALCIUM
  9. LAMISIL [Concomitant]
     Active Substance: TERBINAFINE HYDROCHLORIDE
  10. NITROFURANTOIN. [Concomitant]
     Active Substance: NITROFURANTOIN
  11. ZOFRAN [Concomitant]
     Active Substance: ONDANSETRON HYDROCHLORIDE
  12. REMERON [Interacting]
     Active Substance: MIRTAZAPINE
     Indication: DEPRESSION
  13. ACETAMINOPHEN. [Concomitant]
     Active Substance: ACETAMINOPHEN
  14. CENTRUM FORTE [Concomitant]

REACTIONS (3)
  - Drug interaction [Recovering/Resolving]
  - Respiratory failure [Recovering/Resolving]
  - Bilevel positive airway pressure [Recovering/Resolving]
